FAERS Safety Report 26206665 (Version 1)
Quarter: 2025Q4

REPORT INFORMATION
  Report Type: Spontaneous
  Country: GB (occurrence: GB)
  Receive Date: 20251229
  Receipt Date: 20251229
  Transmission Date: 20260117
  Serious: Yes (Other)
  Sender: CHEPLAPHARM
  Company Number: GB-CHEPLA-2025014460

PATIENT
  Age: 60 Year
  Sex: Male

DRUGS (3)
  1. ORLISTAT [Suspect]
     Active Substance: ORLISTAT
     Indication: Weight decreased
  2. ASCORBIC ACID [Suspect]
     Active Substance: ASCORBIC ACID
     Dosage: DAILY DOSE: 2440 MILLIGRAM
  3. VITAMIN D3 [Suspect]
     Active Substance: CHOLECALCIFEROL
     Dosage: DAILY DOSE: 13200 IU (INTERNATIONAL UNIT)

REACTIONS (9)
  - Renal impairment [Recovering/Resolving]
  - Crystal nephropathy [Unknown]
  - Azotaemia [Unknown]
  - Chronic kidney disease [Unknown]
  - Hypercalcaemia [Unknown]
  - Hyperoxaluria [Unknown]
  - Hypercalciuria [Unknown]
  - Prescription drug used without a prescription [Unknown]
  - Self-medication [Unknown]
